FAERS Safety Report 9299727 (Version 1)
Quarter: 2013Q2

REPORT INFORMATION
  Report Type: Spontaneous
  Country: US (occurrence: US)
  Receive Date: 20130521
  Receipt Date: 20130521
  Transmission Date: 20140414
  Serious: No
  Sender: FDA-Public Use
  Company Number: US-BIOGENIDEC-2013BI045215

PATIENT
  Age: 32 Year
  Sex: Female

DRUGS (2)
  1. TYSABRI [Suspect]
     Indication: MULTIPLE SCLEROSIS
     Route: 042
     Dates: start: 20071226, end: 20130411
  2. PLAQUENIL [Concomitant]
     Indication: RHEUMATOID ARTHRITIS

REACTIONS (6)
  - Tremor [Not Recovered/Not Resolved]
  - Muscle twitching [Not Recovered/Not Resolved]
  - Headache [Recovered/Resolved]
  - Fatigue [Recovered/Resolved]
  - Pyrexia [Recovered/Resolved]
  - Multiple sclerosis [Not Recovered/Not Resolved]
